FAERS Safety Report 21782395 (Version 3)
Quarter: 2023Q1

REPORT INFORMATION
  Report Type: Spontaneous
  Country: US (occurrence: US)
  Receive Date: 20221227
  Receipt Date: 20230127
  Transmission Date: 20230417
  Serious: Yes (Death, Hospitalization, Other)
  Sender: FDA-Public Use
  Company Number: US-BIOVITRUM-2022US15646

PATIENT
  Age: 1 Year
  Sex: Male
  Weight: 9 kg

DRUGS (13)
  1. SYNAGIS [Suspect]
     Active Substance: PALIVIZUMAB
     Indication: Multiple congenital abnormalities
     Dosage: ONCE A MONTH
  2. LANSOPRAZOLE [Concomitant]
     Active Substance: LANSOPRAZOLE
     Dosage: 100%POWDER
  3. VITAMIN D3 [Concomitant]
     Active Substance: CHOLECALCIFEROL
     Dosage: 10 (400)/ML DROPS
  4. MUPIROCIN [Concomitant]
     Active Substance: MUPIROCIN
     Dosage: 2% OINT(GM)
  5. NYSTATIN [Concomitant]
     Active Substance: NYSTATIN
     Dosage: 10000/G
  6. OFLOXACIN [Concomitant]
     Active Substance: OFLOXACIN
     Dosage: 0.3% DROS
  7. IBUPROFEN [Concomitant]
     Active Substance: IBUPROFEN
     Dosage: 100MG/5ML ORAL USE
  8. ATROVENT HFA [Concomitant]
     Active Substance: IPRATROPIUM BROMIDE
     Dosage: 17 MCG
  9. FLOVENT HFA [Concomitant]
     Active Substance: FLUTICASONE PROPIONATE
     Dosage: 110 MCG AERW/ADAP
  10. TRIAMCINOLONE ACETONIDE [Concomitant]
     Active Substance: TRIAMCINOLONE ACETONIDE
  11. ALBUTEROL SULFATE [Concomitant]
     Active Substance: ALBUTEROL SULFATE
  12. SYNAGIS [Suspect]
     Active Substance: PALIVIZUMAB
     Indication: Tracheostomy
  13. SYNAGIS [Suspect]
     Active Substance: PALIVIZUMAB
     Indication: Oesophageal atresia

REACTIONS (3)
  - Death [Fatal]
  - Hypoxia [Recovering/Resolving]
  - Influenza [Unknown]

NARRATIVE: CASE EVENT DATE: 20230122
